FAERS Safety Report 13424770 (Version 3)
Quarter: 2018Q1

REPORT INFORMATION
  Report Type: Report from Study
  Country: US (occurrence: US)
  Receive Date: 20170410
  Receipt Date: 20180108
  Transmission Date: 20180508
  Serious: No
  Sender: FDA-Public Use
  Company Number: US-RETROPHIN, INC.-2017RTN00006

PATIENT
  Age: 7 Year
  Sex: Female
  Weight: 20.41 kg

DRUGS (8)
  1. ^NORMAL^ MULTIVITAMINS [Concomitant]
  2. UNSPECIFIED EYE DROPS [Concomitant]
     Active Substance: UNSPECIFIED INGREDIENT
  3. AQUADEKS [Concomitant]
     Active Substance: MINERALS\VITAMINS
     Dosage: 1 TABLETS, 1X/DAY
  4. ALIGN PROBIOTIC [Concomitant]
     Dosage: 1 DOSAGE UNITS, UP TO 1X/DAY
  5. CHOLBAM [Suspect]
     Active Substance: CHOLIC ACID
     Indication: CEREBROHEPATORENAL SYNDROME
  6. TUMS [Concomitant]
     Active Substance: CALCIUM CARBONATE
     Dosage: 1000 MG, 1X/DAY
     Dates: start: 201608
  7. OCUVITE (EYE VITAMIN) [Concomitant]
     Dosage: 1 TABLETS, 1X/DAY
  8. CHOLBAM [Suspect]
     Active Substance: CHOLIC ACID
     Indication: REFSUM^S DISEASE
     Dosage: 250 MG, 1X/DAY AT NIGHT
     Route: 048
     Dates: start: 20170222

REACTIONS (7)
  - Aspartate aminotransferase increased [Unknown]
  - Epistaxis [Recovered/Resolved]
  - Constipation [Not Recovered/Not Resolved]
  - Nasopharyngitis [Recovered/Resolved]
  - Alanine aminotransferase increased [Unknown]
  - Abdominal pain [Not Recovered/Not Resolved]
  - Blood creatinine decreased [Unknown]

NARRATIVE: CASE EVENT DATE: 201703
